FAERS Safety Report 9229249 (Version 1)
Quarter: 2013Q2

REPORT INFORMATION
  Report Type: Spontaneous
  Country: US (occurrence: US)
  Receive Date: 20130412
  Receipt Date: 20130412
  Transmission Date: 20140414
  Serious: No
  Sender: FDA-Public Use
  Company Number: US-ASTELLAS-2012US012502

PATIENT
  Sex: Female
  Weight: 57 kg

DRUGS (5)
  1. PROGRAF [Suspect]
     Indication: RENAL TRANSPLANT
     Dosage: 1.5 MG, BID
     Route: 048
  2. CELLCEPT                           /01275102/ [Concomitant]
     Indication: RENAL TRANSPLANT
     Dosage: UNK
     Route: 065
  3. VANCOMYCIN [Concomitant]
     Dosage: UNK
     Route: 065
  4. PREDNISONE [Concomitant]
     Indication: ARTHRITIS
     Dosage: UNK
     Route: 065
  5. CULTURELLE [Concomitant]
     Dosage: UNK
     Route: 065

REACTIONS (1)
  - Bacterial infection [Unknown]
